FAERS Safety Report 15857381 (Version 1)
Quarter: 2019Q1

REPORT INFORMATION
  Report Type: Spontaneous
  Country: CN (occurrence: CN)
  Receive Date: 20190123
  Receipt Date: 20190123
  Transmission Date: 20190417
  Serious: Yes (Hospitalization, Other)
  Sender: FDA-Public Use
  Company Number: CN-GLAXOSMITHKLINE-CN2019GSK008019

PATIENT
  Age: 63 Year
  Sex: Male

DRUGS (4)
  1. SORAFENIB [Interacting]
     Active Substance: SORAFENIB
     Dosage: 0.4 G, BID
  2. DICLOFENAC SODIUM. [Suspect]
     Active Substance: DICLOFENAC SODIUM
     Indication: PAIN
     Dosage: 75 MG, UNK
  3. SORAFENIB [Interacting]
     Active Substance: SORAFENIB
     Dosage: 0.2 G, BID
  4. SORAFENIB [Interacting]
     Active Substance: SORAFENIB
     Indication: RENAL CANCER METASTATIC
     Dosage: 0.2 G, QID
     Route: 048
     Dates: start: 201710

REACTIONS (11)
  - Drug interaction [Unknown]
  - Chromaturia [Unknown]
  - Drug-induced liver injury [Unknown]
  - Skin discolouration [Unknown]
  - Jaundice hepatocellular [Unknown]
  - Yellow skin [Unknown]
  - Transaminases increased [Recovered/Resolved]
  - Acute hepatic failure [Recovering/Resolving]
  - Hepatic function abnormal [Unknown]
  - Coagulation test abnormal [Unknown]
  - Blood bilirubin increased [Unknown]

NARRATIVE: CASE EVENT DATE: 20180218
